FAERS Safety Report 12689667 (Version 1)
Quarter: 2016Q3

REPORT INFORMATION
  Report Type: Spontaneous
  Country: US (occurrence: None)
  Receive Date: 20160825
  Receipt Date: 20160825
  Transmission Date: 20161109
  Serious: Yes (Hospitalization)
  Sender: FDA-Public Use
  Company Number: None

PATIENT
  Age: 42 Year
  Sex: Female
  Weight: 66.3 kg

DRUGS (2)
  1. NIVOLUMAB 3MG/KG [Suspect]
     Active Substance: NIVOLUMAB
     Indication: MALIGNANT MELANOMA
     Route: 042
     Dates: start: 20150812
  2. IPILIMUMAB 1MG/KG [Suspect]
     Active Substance: IPILIMUMAB
     Indication: MALIGNANT MELANOMA
     Dosage: 69MG  Q6WEEKS IV
     Route: 042
     Dates: start: 20160812

REACTIONS (5)
  - Hypokalaemia [None]
  - Dehydration [None]
  - Blood creatinine increased [None]
  - Diarrhoea [None]
  - Hyponatraemia [None]

NARRATIVE: CASE EVENT DATE: 20160822
